FAERS Safety Report 14156130 (Version 3)
Quarter: 2017Q4

REPORT INFORMATION
  Report Type: Spontaneous
  Country: US (occurrence: US)
  Receive Date: 20171103
  Receipt Date: 20171215
  Transmission Date: 20180321
  Serious: No
  Sender: FDA-Public Use
  Company Number: US-KYOWAKIRIN-2017BKK002868

PATIENT

DRUGS (4)
  1. SANCUSO [Suspect]
     Active Substance: GRANISETRON
     Dosage: 1 PATCH WEEKLY, FOR 7 DAYS
     Route: 062
     Dates: start: 20171007, end: 20171009
  2. SANCUSO [Suspect]
     Active Substance: GRANISETRON
     Dosage: 1 PATCH WEEKLY, FOR 7 DAYS
     Route: 062
     Dates: start: 20171009, end: 201710
  3. SANCUSO [Suspect]
     Active Substance: GRANISETRON
     Indication: HYPEREMESIS GRAVIDARUM
     Dosage: 1 PATCH WEEKLY, FOR 7 DAYS
     Route: 062
     Dates: start: 20171002, end: 201710
  4. SANCUSO [Suspect]
     Active Substance: GRANISETRON
     Dosage: 1 PATCH WEEKLY, FOR 7 DAYS
     Route: 062
     Dates: start: 20171013

REACTIONS (3)
  - Drug ineffective for unapproved indication [Not Recovered/Not Resolved]
  - Exposure during pregnancy [Not Recovered/Not Resolved]
  - Product adhesion issue [Recovered/Resolved]

NARRATIVE: CASE EVENT DATE: 20171002
